FAERS Safety Report 5188056-2 (Version None)
Quarter: 2006Q4

REPORT INFORMATION
  Report Type: 
  Country: None (occurrence: None)
  Receive Date: 20061214
  Receipt Date: 20061128
  Transmission Date: 20070319
  Serious: Yes (Other)
  Sender: FDA-Public Use
  Company Number: PHBS2006CN18459

PATIENT
  Age: 22 Year
  Sex: Female

DRUGS (1)
  1. VISUDYNE [Suspect]
     Indication: MYOPIA
     Dates: start: 20061122, end: 20061122

REACTIONS (3)
  - GAIT DISTURBANCE [None]
  - OCULAR HYPERAEMIA [None]
  - PAIN IN EXTREMITY [None]
